FAERS Safety Report 5750801-2 (Version None)
Quarter: 2008Q2

REPORT INFORMATION
  Report Type: 
  Country: None (occurrence: None)
  Receive Date: 20080528
  Receipt Date: 20080516
  Transmission Date: 20081010
  Serious: Yes (Other)
  Sender: FDA-Public Use
  Company Number: A0728165A

PATIENT
  Sex: Male

DRUGS (6)
  1. EPZICOM [Suspect]
     Indication: HIV INFECTION
     Route: 048
     Dates: start: 20080508, end: 20080511
  2. FLUCONAZOLE [Concomitant]
     Dosage: 100MG PER DAY
     Route: 065
  3. BACTRIM [Concomitant]
     Route: 065
  4. KALETRA [Concomitant]
     Indication: ANTIRETROVIRAL THERAPY
     Route: 065
     Dates: start: 20080508
  5. VIREAD [Concomitant]
     Indication: ANTIRETROVIRAL THERAPY
     Route: 065
     Dates: start: 20080508
  6. VANCOMYCIN [Concomitant]
     Indication: OTITIS MEDIA
     Route: 065
     Dates: start: 20080505

REACTIONS (5)
  - ARTHRALGIA [None]
  - ASPARTATE AMINOTRANSFERASE INCREASED [None]
  - BLOOD CREATININE INCREASED [None]
  - PYREXIA [None]
  - RASH [None]
